FAERS Safety Report 7518426-6 (Version None)
Quarter: 2011Q2

REPORT INFORMATION
  Report Type: 
  Country: None (occurrence: None)
  Receive Date: 20110602
  Receipt Date: 20110525
  Transmission Date: 20111010
  Serious: Yes (Death, Hospitalization, Other)
  Sender: FDA-Public Use
  Company Number: JP-AMGEN-JPNSP2011020090

PATIENT
  Age: 77 Year
  Sex: Female
  Weight: 53.4 kg

DRUGS (9)
  1. ENBREL [Suspect]
     Dosage: 25 MG, WEEKLY
     Route: 058
     Dates: start: 20090204, end: 20101202
  2. AZULFIDINE [Concomitant]
     Dosage: 1 DF, 2X/DAY
     Route: 048
     Dates: start: 20080326, end: 20100817
  3. REMICADE [Concomitant]
     Dosage: SINGLE DOSE
     Route: 042
     Dates: start: 20060801, end: 20060801
  4. ORCL [Concomitant]
     Indication: RHEUMATOID ARTHRITIS
     Dosage: 100 MG, 3X/DAY
     Route: 048
     Dates: start: 20060126, end: 20060202
  5. AZULFIDINE [Concomitant]
     Indication: RHEUMATOID ARTHRITIS
     Dosage: 1 DF, 2X/DAY
     Route: 048
     Dates: start: 20060202, end: 20070725
  6. PREDNISOLONE [Concomitant]
     Indication: RHEUMATOID ARTHRITIS
     Dosage: 5 MG, 1X/DAY
     Route: 048
     Dates: start: 20060119, end: 20100528
  7. PREDNISOLONE [Concomitant]
     Dosage: 2.5 MG, UNK
     Route: 048
  8. ENBREL [Suspect]
     Indication: RHEUMATOID ARTHRITIS
     Dosage: 25 MG, EVERY TWO WEEKS
     Route: 058
     Dates: start: 20070711, end: 20081224
  9. PREDNISOLONE [Concomitant]
     Indication: STEROID THERAPY
     Dosage: 2 MG, QD
     Route: 048
     Dates: start: 20100625

REACTIONS (4)
  - SEPSIS [None]
  - INFLUENZA [None]
  - LUMBAR SPINAL STENOSIS [None]
  - MULTI-ORGAN FAILURE [None]
